FAERS Safety Report 13015922 (Version 1)
Quarter: 2016Q4

REPORT INFORMATION
  Report Type: Spontaneous
  Country: US (occurrence: US)
  Receive Date: 20161212
  Receipt Date: 20161212
  Transmission Date: 20170207
  Serious: No
  Sender: FDA-Public Use
  Company Number: US-JNJFOC-20161026271

PATIENT
  Age: 51 Year
  Sex: Female

DRUGS (5)
  1. METFORMIN [Concomitant]
     Active Substance: METFORMIN HYDROCHLORIDE
     Route: 065
  2. XARELTO [Suspect]
     Active Substance: RIVAROXABAN
     Indication: DEEP VEIN THROMBOSIS
     Route: 048
     Dates: start: 2015
  3. LISINOPRIL. [Concomitant]
     Active Substance: LISINOPRIL
     Route: 065
  4. LANTUS [Concomitant]
     Active Substance: INSULIN GLARGINE
     Route: 065
  5. VISTARIL [Concomitant]
     Active Substance: HYDROXYZINE PAMOATE
     Route: 065

REACTIONS (1)
  - Platelet count increased [Unknown]

NARRATIVE: CASE EVENT DATE: 201610
